FAERS Safety Report 8738709 (Version 2)
Quarter: 2013Q1

REPORT INFORMATION
  Report Type: Spontaneous
  Country: CN (occurrence: CN)
  Receive Date: 20120823
  Receipt Date: 20130201
  Transmission Date: 20140127
  Serious: Yes (Other)
  Sender: FDA-Public Use
  Company Number: CN-ABBOTT-12P-035-0970976-00

PATIENT
  Age: 3 Year
  Sex: Male

DRUGS (2)
  1. DEPAKINE [Suspect]
     Indication: EPILEPSY
     Route: 048
     Dates: start: 201203, end: 201208
  2. DEPAKINE [Suspect]
     Route: 048
     Dates: start: 201208, end: 20120815

REACTIONS (5)
  - Trismus [Recovered/Resolved]
  - Epilepsy [Recovered/Resolved]
  - Convulsion [Recovered/Resolved]
  - Confusional state [Recovered/Resolved]
  - Abnormal behaviour [Recovered/Resolved]
